FAERS Safety Report 10342241 (Version 1)
Quarter: 2014Q3

REPORT INFORMATION
  Report Type: Spontaneous
  Country: US (occurrence: None)
  Receive Date: 20140723
  Receipt Date: 20140723
  Transmission Date: 20150326
  Serious: Yes (Other)
  Sender: FDA-Public Use
  Company Number: 201407054

PATIENT
  Age: 49 Year
  Sex: Male

DRUGS (1)
  1. TESTIM [Suspect]
     Active Substance: TESTOSTERONE
     Dates: start: 200811, end: 201112

REACTIONS (2)
  - Coronary artery disease [None]
  - Coronary artery stenosis [None]

NARRATIVE: CASE EVENT DATE: 201206
